FAERS Safety Report 13592548 (Version 2)
Quarter: 2017Q2

REPORT INFORMATION
  Report Type: Report from Study
  Country: CO (occurrence: CO)
  Receive Date: 20170530
  Receipt Date: 20170603
  Transmission Date: 20170830
  Serious: Yes (Hospitalization, Other)
  Sender: FDA-Public Use
  Company Number: CO-AMGEN-COLSL2017032217

PATIENT
  Age: 54 Year
  Sex: Female

DRUGS (3)
  1. NPLATE [Suspect]
     Active Substance: ROMIPLOSTIM
     Dosage: 146 MUG, QWK
     Route: 058
     Dates: start: 20160329
  2. NPLATE [Suspect]
     Active Substance: ROMIPLOSTIM
     Indication: IMMUNE THROMBOCYTOPENIC PURPURA
     Dosage: 70 MUG, QWK
     Route: 058
     Dates: start: 20160329
  3. NPLATE [Suspect]
     Active Substance: ROMIPLOSTIM
     Dosage: 125 MUG, UNK
     Route: 058
     Dates: start: 20170220

REACTIONS (8)
  - Intentional product misuse [Recovered/Resolved]
  - Disorientation [Not Recovered/Not Resolved]
  - Cerebral thrombosis [Not Recovered/Not Resolved]
  - Thrombocytopenia [Recovered/Resolved]
  - Hypertensive crisis [Not Recovered/Not Resolved]
  - Headache [Not Recovered/Not Resolved]
  - Petechiae [Recovered/Resolved]
  - Contusion [Recovered/Resolved]

NARRATIVE: CASE EVENT DATE: 20170218
